FAERS Safety Report 12732832 (Version 1)
Quarter: 2016Q3

REPORT INFORMATION
  Report Type: Spontaneous
  Country: US (occurrence: US)
  Receive Date: 20160910
  Receipt Date: 20160910
  Transmission Date: 20161109
  Serious: No
  Sender: FDA-Public Use
  Company Number: None

PATIENT
  Age: 20 Year
  Sex: Female
  Weight: 60.75 kg

DRUGS (2)
  1. MINOCYCLINE [Suspect]
     Active Substance: MINOCYCLINE\MINOCYCLINE HYDROCHLORIDE
     Indication: ACNE
     Route: 048
  2. GUMMY VITAMINS [Concomitant]

REACTIONS (3)
  - Depersonalisation/derealisation disorder [None]
  - Emotional disorder [None]
  - Fear [None]

NARRATIVE: CASE EVENT DATE: 20160831
